FAERS Safety Report 10397042 (Version 1)
Quarter: 2014Q3

REPORT INFORMATION
  Report Type: Spontaneous
  Country: US (occurrence: None)
  Receive Date: 20140819
  Receipt Date: 20140819
  Transmission Date: 20150326
  Serious: Yes (Other)
  Sender: FDA-Public Use
  Company Number: None

PATIENT
  Age: 33 Year
  Sex: Male

DRUGS (1)
  1. AMPHETAMINE [Suspect]
     Active Substance: AMPHETAMINE
     Indication: ATTENTION DEFICIT/HYPERACTIVITY DISORDER
     Dosage: ONE CAPSULE PO 1X DAILY, ONCE DAILY, TAKEN BY MOUTH
     Route: 048
     Dates: start: 20130611, end: 20140815

REACTIONS (1)
  - Muscle twitching [None]

NARRATIVE: CASE EVENT DATE: 20140815
